FAERS Safety Report 14652293 (Version 4)
Quarter: 2018Q2

REPORT INFORMATION
  Report Type: Report from Study
  Country: IL (occurrence: IL)
  Receive Date: 20180318
  Receipt Date: 20180531
  Transmission Date: 20180711
  Serious: Yes (Other)
  Sender: FDA-Public Use
  Company Number: PHHY2016IL156545

PATIENT
  Age: 79 Year
  Sex: Female
  Weight: 64 kg

DRUGS (4)
  1. AFINITOR [Suspect]
     Active Substance: EVEROLIMUS
     Dosage: 5 MG, QD
     Route: 048
     Dates: start: 20161120, end: 20161127
  2. AFINITOR [Suspect]
     Active Substance: EVEROLIMUS
     Dosage: 5 MG, QD
     Route: 048
  3. AFINITOR [Suspect]
     Active Substance: EVEROLIMUS
     Dosage: 5 MG, QD
     Route: 048
     Dates: start: 20170101
  4. AFINITOR [Suspect]
     Active Substance: EVEROLIMUS
     Indication: BREAST CANCER
     Dosage: 5 MG, QD
     Route: 048
     Dates: start: 20160901, end: 20161109

REACTIONS (33)
  - Tongue coated [Not Recovered/Not Resolved]
  - Medical device pain [Not Recovered/Not Resolved]
  - Tumour marker increased [Unknown]
  - Nausea [Not Recovered/Not Resolved]
  - Tongue discolouration [Recovered/Resolved]
  - Contusion [Unknown]
  - Abdominal pain lower [Not Recovered/Not Resolved]
  - Ascites [Unknown]
  - Post procedural complication [Recovered/Resolved]
  - Decreased appetite [Recovering/Resolving]
  - Breast cancer [Unknown]
  - Pain [Recovered/Resolved]
  - Weight decreased [Unknown]
  - Abdominal distension [Not Recovered/Not Resolved]
  - Feeling abnormal [Not Recovered/Not Resolved]
  - Urinary tract infection bacterial [Unknown]
  - Depressed mood [Not Recovered/Not Resolved]
  - Urine output decreased [Not Recovered/Not Resolved]
  - Asthenia [Not Recovered/Not Resolved]
  - Back pain [Not Recovered/Not Resolved]
  - Chest pain [Not Recovered/Not Resolved]
  - Oedema peripheral [Not Recovered/Not Resolved]
  - Pneumonia [Unknown]
  - Malignant neoplasm progression [Unknown]
  - Dysuria [Not Recovered/Not Resolved]
  - Fall [Recovered/Resolved with Sequelae]
  - Cough [Recovering/Resolving]
  - Rib fracture [Unknown]
  - Confusional state [Unknown]
  - Amnesia [Not Recovered/Not Resolved]
  - Blood urine present [Not Recovered/Not Resolved]
  - Gingival pain [Not Recovered/Not Resolved]
  - Dyspnoea [Recovering/Resolving]

NARRATIVE: CASE EVENT DATE: 20161127
